FAERS Safety Report 8916270 (Version 1)
Quarter: 2012Q4

REPORT INFORMATION
  Report Type: 
  Country: FR (occurrence: FR)
  Receive Date: 20121120
  Receipt Date: 20121120
  Transmission Date: 20130627
  Serious: Yes (Disabling)
  Sender: FDA-Public Use
  Company Number: FR-ELI_LILLY_AND_COMPANY-FR201211001582

PATIENT
  Age: 23 Year
  Sex: Male

DRUGS (1)
  1. CYMBALTA [Suspect]
     Dosage: 60 mg, UNK
     Route: 048
     Dates: start: 20120530

REACTIONS (5)
  - Road traffic accident [Not Recovered/Not Resolved]
  - Paraplegia [Not Recovered/Not Resolved]
  - Hyperhidrosis [Unknown]
  - Vision blurred [Unknown]
  - Asthenia [Unknown]
